FAERS Safety Report 4349929-3 (Version None)
Quarter: 2004Q2

REPORT INFORMATION
  Report Type: 
  Country: None (occurrence: None)
  Receive Date: 20040426
  Receipt Date: 20040416
  Transmission Date: 20050107
  Serious: No
  Sender: FDA-Public Use
  Company Number: 2001063200FR

PATIENT
  Age: 94 Year
  Sex: Female

DRUGS (7)
  1. CELEBREX [Suspect]
     Indication: OSTEOARTHRITIS
     Dosage: ORAL
     Route: 048
     Dates: start: 20010318, end: 20010407
  2. TANAKAN (GINKGO TREE LEAVES EXTRACT) [Suspect]
     Dosage: ORAL
     Route: 048
     Dates: start: 20010208, end: 20010407
  3. ACETAMINOPHEN [Concomitant]
  4. LORAZEPAM [Concomitant]
  5. MELLERIL (THIORIDAZINE HYDROCHLORIDE) [Concomitant]
  6. PROZAC [Concomitant]
  7. OMEPRAZOLE [Concomitant]

REACTIONS (6)
  - CHEILITIS [None]
  - ENANTHEMA [None]
  - ERYTHEMA MULTIFORME [None]
  - PYREXIA [None]
  - RASH ERYTHEMATOUS [None]
  - RASH MACULO-PAPULAR [None]
